FAERS Safety Report 12446447 (Version 1)
Quarter: 2016Q2

REPORT INFORMATION
  Report Type: Spontaneous
  Country: US (occurrence: None)
  Receive Date: 20160607
  Receipt Date: 20160607
  Transmission Date: 20160815
  Serious: Yes (Other)
  Sender: FDA-Public Use
  Company Number: None

PATIENT
  Age: 42 Year
  Sex: Female
  Weight: 54.43 kg

DRUGS (6)
  1. ATENELOL [Concomitant]
     Active Substance: ATENOLOL
  2. ESTRACE [Concomitant]
     Active Substance: ESTRADIOL
  3. ASPIRIN. [Concomitant]
     Active Substance: ASPIRIN
  4. VIIBRYD [Suspect]
     Active Substance: VILAZODONE HYDROCHLORIDE
     Indication: DEPRESSION
     Dosage: 30 TABLET(S) IN THE MORNING TAKEN BY MOUTH
     Route: 048
     Dates: start: 20160229
  5. BUSPAR [Suspect]
     Active Substance: BUSPIRONE HYDROCHLORIDE
     Indication: ANXIETY
     Dosage: 90 TABLET(S) EVERY 4 HOURS TAKEN BY MOUTH
     Route: 048
     Dates: start: 20150228
  6. HYDROXYZINE [Concomitant]
     Active Substance: HYDROXYZINE\HYDROXYZINE HYDROCHLORIDE

REACTIONS (7)
  - Condition aggravated [None]
  - Toxicity to various agents [None]
  - Blood pressure increased [None]
  - Heart rate irregular [None]
  - Insomnia [None]
  - Renal disorder [None]
  - Vomiting [None]

NARRATIVE: CASE EVENT DATE: 20160606
